FAERS Safety Report 16096668 (Version 1)
Quarter: 2019Q1

REPORT INFORMATION
  Report Type: Report from Study
  Country: IE (occurrence: IE)
  Receive Date: 20190320
  Receipt Date: 20190320
  Transmission Date: 20190418
  Serious: Yes (Other)
  Sender: FDA-Public Use
  Company Number: IE-JNJFOC-20190118344

PATIENT
  Age: 67 Year
  Sex: Male

DRUGS (10)
  1. RAMIPRIL. [Concomitant]
     Active Substance: RAMIPRIL
     Route: 050
  2. LERCANIDIPINE [Concomitant]
     Active Substance: LERCANIDIPINE
     Route: 050
  3. ROSUVA [Concomitant]
     Active Substance: ROSUVASTATIN CALCIUM
     Route: 050
  4. ASPIRIN. [Concomitant]
     Active Substance: ASPIRIN
     Route: 050
  5. TRAMADOL. [Concomitant]
     Active Substance: TRAMADOL
     Route: 050
  6. ZOTON [Concomitant]
     Active Substance: LANSOPRAZOLE
     Route: 050
  7. DELTACORTRIL [Concomitant]
     Active Substance: PREDNISOLONE
     Route: 050
  8. ZYTIGA [Suspect]
     Active Substance: ABIRATERONE ACETATE
     Indication: PROSTATE CANCER METASTATIC
     Route: 048
     Dates: start: 20180702
  9. DECAPEPTYL [Concomitant]
     Active Substance: TRIPTORELIN
     Route: 050
  10. BISOP [Concomitant]
     Route: 050

REACTIONS (3)
  - Radiotherapy to joint [Not Recovered/Not Resolved]
  - Blood pressure increased [Recovering/Resolving]
  - Rash [Not Recovered/Not Resolved]

NARRATIVE: CASE EVENT DATE: 20181229
